FAERS Safety Report 7828057-6 (Version None)
Quarter: 2011Q4

REPORT INFORMATION
  Report Type: 
  Country: None (occurrence: None)
  Receive Date: 20111020
  Receipt Date: 20111013
  Transmission Date: 20120403
  Serious: Yes (Other)
  Sender: FDA-Public Use
  Company Number: GB-GLAXOSMITHKLINE-B0755711A

PATIENT
  Sex: Female

DRUGS (3)
  1. NSAIDS [Concomitant]
     Indication: DYSMENORRHOEA
  2. UNKNOWN [Concomitant]
  3. ZYBAN [Suspect]
     Indication: ANXIETY
     Dosage: 150MG TWICE PER DAY
     Route: 048
     Dates: start: 20100101

REACTIONS (5)
  - HAEMOGLOBIN DECREASED [None]
  - OFF LABEL USE [None]
  - GASTRIC ULCER [None]
  - MALAISE [None]
  - PAIN [None]
